FAERS Safety Report 7277927-9 (Version None)
Quarter: 2011Q1

REPORT INFORMATION
  Report Type: 
  Country: None (occurrence: None)
  Receive Date: 20110207
  Receipt Date: 20110202
  Transmission Date: 20110831
  Serious: Yes (Other)
  Sender: FDA-Public Use
  Company Number: US-JNJCH-2011002826

PATIENT
  Age: 50 Year
  Sex: Male
  Weight: 89.8 kg

DRUGS (1)
  1. ZYRTEC [Suspect]
     Indication: HYPERSENSITIVITY
     Route: 048
     Dates: start: 20101215, end: 20110114

REACTIONS (5)
  - ANXIETY [None]
  - IRRITABILITY [None]
  - DEPRESSED MOOD [None]
  - ERECTILE DYSFUNCTION [None]
  - LIBIDO DECREASED [None]
